FAERS Safety Report 18708713 (Version 1)
Quarter: 2021Q1

REPORT INFORMATION
  Report Type: Spontaneous
  Country: CA (occurrence: CA)
  Receive Date: 20210106
  Receipt Date: 20210106
  Transmission Date: 20210419
  Serious: Yes (Other)
  Sender: FDA-Public Use
  Company Number: CA-TEVA-2020-CA-1864789

PATIENT
  Age: 42 Year
  Sex: Female

DRUGS (4)
  1. TRAZODONE [Suspect]
     Active Substance: TRAZODONE HYDROCHLORIDE
     Dosage: 25 MILLIGRAM DAILY;
     Route: 048
  2. TRAZODONE [Suspect]
     Active Substance: TRAZODONE HYDROCHLORIDE
     Dosage: 50 MILLIGRAM DAILY;
     Route: 048
  3. VENLAFAXINE XR [Suspect]
     Active Substance: VENLAFAXINE HYDROCHLORIDE
     Dosage: 75 MILLIGRAM DAILY; EXTENDED RELEASE
  4. VENLAFAXINE XR [Suspect]
     Active Substance: VENLAFAXINE HYDROCHLORIDE
     Dosage: 150 MILLIGRAM DAILY; EXTENDED RELEASE
     Route: 048

REACTIONS (6)
  - Headache [Unknown]
  - Hyperhidrosis [Unknown]
  - Muscle rigidity [Unknown]
  - Drug withdrawal syndrome [Unknown]
  - Alcohol withdrawal syndrome [Unknown]
  - Serotonin syndrome [Unknown]
